FAERS Safety Report 11414875 (Version 1)
Quarter: 2015Q3

REPORT INFORMATION
  Report Type: Spontaneous
  Country: US (occurrence: US)
  Receive Date: 20150825
  Receipt Date: 20150825
  Transmission Date: 20151125
  Serious: No
  Sender: FDA-Public Use
  Company Number: US-SUN PHARMACEUTICAL INDUSTRIES LTD-2015SUN01680

PATIENT
  Age: 5 Decade
  Sex: Female

DRUGS (1)
  1. TECHNETIUM TC99M PYROPHOSPHATE [Suspect]
     Active Substance: TECHNETIUM TC-99M PYROPHOSPHATE
     Indication: MULTIPLE GATED ACQUISITION SCAN
     Dosage: 2.7 ML, OD, ENTIRE VIAL
     Route: 042
     Dates: start: 20150128, end: 20150128

REACTIONS (1)
  - Drug level changed [Recovered/Resolved]

NARRATIVE: CASE EVENT DATE: 20150128
